FAERS Safety Report 4499770-6 (Version None)
Quarter: 2004Q4

REPORT INFORMATION
  Report Type: 
  Country: None (occurrence: None)
  Receive Date: 20041108
  Receipt Date: 20041025
  Transmission Date: 20050328
  Serious: Yes (Hospitalization)
  Sender: FDA-Public Use
  Company Number: B0349213A

PATIENT
  Age: 56 Year
  Sex: Female

DRUGS (4)
  1. LANOXIN [Suspect]
  2. WARFARIN SODIUM (WARFARIN SODIUM) (GENERIC) [Suspect]
  3. CLARITHROMYCIN [Suspect]
     Indication: PNEUMONIA
     Dosage: 500 MG/TWICE PER DAY
  4. AMPICILLIN+CLAVULANIC AC. [Concomitant]

REACTIONS (15)
  - ASTHENIA [None]
  - ATRIAL FIBRILLATION [None]
  - ATRIOVENTRICULAR BLOCK COMPLETE [None]
  - CARDIOACTIVE DRUG LEVEL BELOW THERAPEUTIC [None]
  - DIZZINESS [None]
  - DRUG INTERACTION [None]
  - DYSPNOEA [None]
  - ELECTROCARDIOGRAM T WAVE ABNORMAL [None]
  - INTERNATIONAL NORMALISED RATIO INCREASED [None]
  - LOBAR PNEUMONIA [None]
  - NAUSEA [None]
  - NODAL RHYTHM [None]
  - THERAPEUTIC AGENT TOXICITY [None]
  - VENTRICULAR EXTRASYSTOLES [None]
  - VOMITING [None]
